FAERS Safety Report 8778543 (Version 2)
Quarter: 2012Q4

REPORT INFORMATION
  Report Type: 
  Country: US (occurrence: US)
  Receive Date: 20120912
  Receipt Date: 20121001
  Transmission Date: 20130627
  Serious: Yes (Other)
  Sender: FDA-Public Use
  Company Number: CHPA2012US019449

PATIENT
  Sex: Female

DRUGS (3)
  1. MYOFLEX ANALGESIC CREME [Suspect]
     Indication: BURSITIS
     Dosage: UNK, UNK
     Route: 061
     Dates: start: 2002
  2. DRUG THERAPY NOS [Concomitant]
     Indication: MULTIPLE ALLERGIES
     Dosage: UNK, UNK
  3. SINGULAIR [Concomitant]
     Indication: MULTIPLE ALLERGIES
     Dosage: UNK, UNK

REACTIONS (4)
  - Product quality issue [Not Recovered/Not Resolved]
  - Respiratory tract infection [Not Recovered/Not Resolved]
  - Therapeutic response unexpected [Unknown]
  - Off label use [Unknown]
